FAERS Safety Report 18210412 (Version 1)
Quarter: 2020Q3

REPORT INFORMATION
  Report Type: Report from Study
  Country: HN (occurrence: HN)
  Receive Date: 20200829
  Receipt Date: 20200829
  Transmission Date: 20201103
  Serious: Yes (Other)
  Sender: FDA-Public Use
  Company Number: NVSC2020HN237052

PATIENT
  Age: 83 Year
  Sex: Male

DRUGS (1)
  1. VYMADA [Suspect]
     Active Substance: SACUBITRIL\VALSARTAN
     Indication: PRODUCT USED FOR UNKNOWN INDICATION
     Dosage: 50 MG, UNKNOWN
     Route: 065
     Dates: start: 201912

REACTIONS (7)
  - Dry skin [Unknown]
  - Poor peripheral circulation [Unknown]
  - Senile dementia [Unknown]
  - Boredom [Unknown]
  - Arrhythmia [Unknown]
  - Fatigue [Unknown]
  - Vein disorder [Unknown]
